FAERS Safety Report 4825433-0 (Version None)
Quarter: 2005Q4

REPORT INFORMATION
  Report Type: 
  Country: None (occurrence: None)
  Receive Date: 20051109
  Receipt Date: 20051027
  Transmission Date: 20060501
  Serious: Yes (Hospitalization)
  Sender: FDA-Public Use
  Company Number: 2005_000050

PATIENT
  Age: 56 Year
  Sex: Female

DRUGS (2)
  1. DEPOCYT [Suspect]
     Indication: CHRONIC LEUKAEMIA
     Dosage: 50 MG; MONTHLY; INTRATHECAL
     Route: 039
     Dates: start: 20050101, end: 20050301
  2. DEXAMETHASONE [Concomitant]

REACTIONS (4)
  - CHRONIC LYMPHOCYTIC LEUKAEMIA [None]
  - MALIGNANT NEOPLASM PROGRESSION [None]
  - SCIATICA [None]
  - SENSORY LOSS [None]
